FAERS Safety Report 6065435-2 (Version None)
Quarter: 2009Q1

REPORT INFORMATION
  Report Type: 
  Country: None (occurrence: None)
  Receive Date: 20090204
  Receipt Date: 20090123
  Transmission Date: 20090719
  Serious: Yes (Hospitalization)
  Sender: FDA-Public Use
  Company Number: HQWYE289530DEC04

PATIENT
  Age: 80 Year
  Sex: Female

DRUGS (11)
  1. INIPOMP [Suspect]
     Route: 048
     Dates: start: 20041008, end: 20041109
  2. PREVISCAN [Suspect]
     Indication: ATRIAL FIBRILLATION
     Dosage: 20 MG, FREQUENCY UNSPECIFIED
     Route: 048
     Dates: start: 20041008, end: 20041107
  3. PREVISCAN [Suspect]
     Indication: ATRIAL FLUTTER
  4. TRINITRIN [Concomitant]
     Indication: ANGINA PECTORIS
     Dosage: UNSPECIFIED
     Route: 065
  5. LASILIX [Suspect]
     Indication: CARDIAC FAILURE
     Route: 048
     Dates: start: 20041008, end: 20041109
  6. LASILIX [Suspect]
     Indication: ESSENTIAL HYPERTENSION
  7. CORDARONE [Concomitant]
     Indication: ATRIAL FIBRILLATION
     Route: 048
     Dates: start: 20041008, end: 20041109
  8. CORDARONE [Concomitant]
     Indication: ATRIAL FLUTTER
  9. CARDENSIEL [Suspect]
     Indication: CARDIAC FAILURE
     Route: 048
     Dates: start: 20041026, end: 20041109
  10. ZESTRIL [Suspect]
     Indication: ESSENTIAL HYPERTENSION
     Route: 048
     Dates: start: 20041008, end: 20041109
  11. ZESTRIL [Suspect]
     Indication: CARDIAC FAILURE

REACTIONS (4)
  - AGRANULOCYTOSIS [None]
  - ASTHENIA [None]
  - INFLAMMATION [None]
  - RENAL FAILURE [None]
